FAERS Safety Report 4481359-6 (Version None)
Quarter: 2004Q4

REPORT INFORMATION
  Report Type: 
  Country: None (occurrence: None)
  Receive Date: 20041021
  Receipt Date: 20041014
  Transmission Date: 20050328
  Serious: Yes (Hospitalization)
  Sender: FDA-Public Use
  Company Number: GB-GLAXOSMITHKLINE-B0348202A

PATIENT
  Age: 85 Year
  Sex: Female
  Weight: 70 kg

DRUGS (7)
  1. AMOXICILLIN [Suspect]
     Indication: INFECTION
     Dosage: 500MG PER DAY
     Route: 042
     Dates: start: 20040920, end: 20040921
  2. SIMVASTATIN [Concomitant]
     Dosage: 20MG PER DAY
     Route: 048
  3. TEMAZEPAM [Concomitant]
     Dosage: 10MG PER DAY
     Route: 048
  4. FUROSEMIDE [Concomitant]
     Dosage: 40MG PER DAY
     Route: 048
  5. IRBESARTAN [Concomitant]
     Dosage: 75MG PER DAY
     Route: 048
  6. WARFARIN SODIUM [Concomitant]
     Route: 065
  7. ROFECOXIB [Concomitant]
     Dosage: 12.5MG PER DAY
     Route: 065
     Dates: start: 20041001

REACTIONS (5)
  - ILL-DEFINED DISORDER [None]
  - MEDICATION ERROR [None]
  - PAIN [None]
  - SKIN INFLAMMATION [None]
  - SKIN REACTION [None]
